FAERS Safety Report 19912142 (Version 10)
Quarter: 2023Q4

REPORT INFORMATION
  Report Type: Spontaneous
  Country: CA (occurrence: CA)
  Receive Date: 20211004
  Receipt Date: 20231106
  Transmission Date: 20240110
  Serious: Yes (Other)
  Sender: FDA-Public Use
  Company Number: CA-MYLANLABS-2021M1068603

PATIENT
  Age: 59 Year
  Sex: Female

DRUGS (51)
  1. RANITIDINE [Interacting]
     Active Substance: RANITIDINE
     Indication: Product used for unknown indication
     Dosage: 150 MILLIGRAM, BID
     Route: 065
  2. RANITIDINE [Interacting]
     Active Substance: RANITIDINE
     Dosage: 150 MILLIGRAM, QD
     Route: 065
  3. RANITIDINE [Interacting]
     Active Substance: RANITIDINE
     Dosage: 1 DOSAGE FORM, BID
     Route: 065
  4. RANITIDINE [Interacting]
     Active Substance: RANITIDINE
     Dosage: 2 DOSAGE FORM, QD
     Route: 065
  5. OLANZAPINE [Interacting]
     Active Substance: OLANZAPINE
     Indication: Mood altered
     Dosage: BID
     Route: 065
  6. OLANZAPINE [Interacting]
     Active Substance: OLANZAPINE
     Dosage: UNK
     Route: 065
  7. OLANZAPINE [Interacting]
     Active Substance: OLANZAPINE
     Dosage: 1 DOSAGE FORM, QD
     Route: 065
  8. OLANZAPINE [Interacting]
     Active Substance: OLANZAPINE
     Dosage: 1 DOSAGE FORM
     Route: 065
  9. OLANZAPINE [Interacting]
     Active Substance: OLANZAPINE
     Dosage: 1 DOSAGE FORM
     Route: 065
  10. OLANZAPINE [Interacting]
     Active Substance: OLANZAPINE
     Dosage: 2 DOSAGE FORM, QD
     Route: 065
  11. ACETAMINOPHEN [Interacting]
     Active Substance: ACETAMINOPHEN
     Indication: Pain
     Dosage: 2 DOSAGE FORM, BID
     Route: 065
  12. ACETAMINOPHEN [Interacting]
     Active Substance: ACETAMINOPHEN
     Indication: Pyrexia
     Dosage: UNK
     Route: 065
  13. ACETAMINOPHEN [Interacting]
     Active Substance: ACETAMINOPHEN
     Dosage: 2 DOSAGE FORM
     Route: 065
  14. VALPROIC ACID [Interacting]
     Active Substance: VALPROIC ACID
     Indication: Product used for unknown indication
     Dosage: UNK, BID
     Route: 065
  15. CLOZAPINE [Interacting]
     Active Substance: CLOZAPINE
     Indication: Product used for unknown indication
     Dosage: 1 DOSAGE FORM, QD
     Route: 065
  16. CLOZAPINE [Interacting]
     Active Substance: CLOZAPINE
     Dosage: 3 DOSAGE FORM, QD
     Route: 065
  17. CLOZAPINE [Interacting]
     Active Substance: CLOZAPINE
     Dosage: UNK, QD (1)
     Route: 065
  18. ZOPICLONE [Interacting]
     Active Substance: ZOPICLONE
     Indication: Insomnia
     Dosage: 1 DOSAGE FORM, QD
     Route: 065
  19. ZOPICLONE [Interacting]
     Active Substance: ZOPICLONE
     Indication: Influenza
  20. ARIPIPRAZOLE [Interacting]
     Active Substance: ARIPIPRAZOLE
     Indication: Product used for unknown indication
     Dosage: UNK
     Route: 065
  21. AMLODIPINE [Interacting]
     Active Substance: AMLODIPINE BESYLATE
     Indication: Product used for unknown indication
     Dosage: 1 DOSAGE FORM, QD
     Route: 065
  22. CAFFEINE [Interacting]
     Active Substance: CAFFEINE
     Indication: Product used for unknown indication
     Dosage: UNK
     Route: 065
  23. CAFFEINE [Interacting]
     Active Substance: CAFFEINE
     Dosage: UNK
     Route: 065
  24. MAGNESIUM OXIDE [Interacting]
     Active Substance: MAGNESIUM OXIDE
     Indication: Product used for unknown indication
     Dosage: UNK
     Route: 065
  25. CLOTRIMAZOLE [Interacting]
     Active Substance: CLOTRIMAZOLE
     Indication: Rash
     Dosage: 1 DOSAGE FORM, BID
     Route: 065
  26. ESTRADIOL [Interacting]
     Active Substance: ESTRADIOL
     Indication: Product used for unknown indication
     Dosage: 1 DOSAGE FORM
     Route: 067
  27. ALUMINUM HYDROXIDE\MAGNESIUM HYDROXIDE [Interacting]
     Active Substance: ALUMINUM HYDROXIDE\MAGNESIUM HYDROXIDE
     Indication: Abdominal discomfort
     Dosage: 30 MILLILITER
     Route: 048
  28. CHOLECALCIFEROL [Interacting]
     Active Substance: CHOLECALCIFEROL
     Indication: Product used for unknown indication
     Dosage: UNK
     Route: 065
  29. LEVOTHYROXINE [Interacting]
     Active Substance: LEVOTHYROXINE
     Indication: Product used for unknown indication
     Dosage: 1 DOSAGE FORM
     Route: 065
  30. PREMARIN [Interacting]
     Active Substance: ESTROGENS, CONJUGATED
     Indication: Product used for unknown indication
     Dosage: UNK
     Route: 061
  31. REXULTI [Interacting]
     Active Substance: BREXPIPRAZOLE
     Indication: Product used for unknown indication
     Dosage: UNK
     Route: 065
  32. FLUMIST QUADRIVALENT [Interacting]
     Active Substance: INFLUENZA A VIRUS A/CALIFORNIA/7/2009 (H1N1) LIVE(ATTENUATED) ANTIGEN\INFLUENZA A VIRUS A/TEXAS/50/2
     Indication: Immunisation
     Dosage: UNK (ONCE/SINGLE)
     Route: 030
  33. ACETAMINOPHEN AND CAFFEINE [Interacting]
     Active Substance: ACETAMINOPHEN\CAFFEINE
     Indication: Pyrexia
     Dosage: 2 DOSAGE FORM
     Route: 065
  34. ACETAMINOPHEN AND CAFFEINE [Interacting]
     Active Substance: ACETAMINOPHEN\CAFFEINE
     Indication: Pain
  35. ALUMINUM HYDROXIDE [Interacting]
     Active Substance: ALUMINUM HYDROXIDE
     Indication: Abdominal discomfort
     Dosage: 30 MILLILITER
     Route: 048
  36. ALUMINUM HYDROXIDE [Interacting]
     Active Substance: ALUMINUM HYDROXIDE
     Dosage: UNK, 30 UNK
     Route: 065
  37. CONJUGATED ESTROGENS [Interacting]
     Active Substance: ESTROGENS, CONJUGATED
     Indication: Product used for unknown indication
     Dosage: UNK
     Route: 061
  38. DIVALPROEX SODIUM [Interacting]
     Active Substance: DIVALPROEX SODIUM
     Indication: Product used for unknown indication
     Dosage: 1 DOSAGE FORM, BID
     Route: 065
  39. DIVALPROEX SODIUM [Interacting]
     Active Substance: DIVALPROEX SODIUM
     Dosage: 2 DOSAGE FORM, QD
     Route: 065
  40. PENTOXYVERINE [Interacting]
     Active Substance: PENTOXYVERINE
     Indication: Product used for unknown indication
     Dosage: UNK
     Route: 065
  41. SIMETHICONE (DIMETHICONE) [Interacting]
     Active Substance: DIMETHICONE
     Indication: Product used for unknown indication
     Dosage: UNK
     Route: 065
  42. PHENYLEPHRINE HYDROCHLORIDE [Interacting]
     Active Substance: PHENYLEPHRINE HYDROCHLORIDE
     Indication: Product used for unknown indication
     Dosage: UNK
     Route: 065
  43. PREMARIN WITH METHYLTESTOSTERONE [Interacting]
     Active Substance: ESTROGENS, CONJUGATED\METHYLTESTOSTERONE
     Indication: Product used for unknown indication
     Dosage: 5 GRAM
     Route: 065
  44. INFLUENZA VIRUS VACCINE [Interacting]
     Active Substance: INFLUENZA VIRUS VACCINE
     Indication: Product used for unknown indication
     Dosage: UNK
     Route: 065
  45. INFLUENZA VIRUS VACCINE [Interacting]
     Active Substance: INFLUENZA VIRUS VACCINE
     Dosage: UNK
     Route: 065
  46. METHYLTESTOSTERONE [Interacting]
     Active Substance: METHYLTESTOSTERONE
     Indication: Product used for unknown indication
     Dosage: UNK
     Route: 065
  47. ACETAMINOPHEN\CARBINOXAMINE MALEATE\PENTOXYVERINE CITRATE\PHENYLEPHRIN [Interacting]
     Active Substance: ACETAMINOPHEN\CARBINOXAMINE MALEATE\PENTOXYVERINE CITRATE\PHENYLEPHRINE HYDROCHLORIDE
     Indication: Product used for unknown indication
     Dosage: UNK
     Route: 065
  48. MAGNESIUM HYDROXIDE [Suspect]
     Active Substance: MAGNESIUM HYDROXIDE
     Indication: Abdominal discomfort
     Dosage: UNK
     Route: 065
  49. MAGNESIUM HYDROXIDE [Suspect]
     Active Substance: MAGNESIUM HYDROXIDE
     Dosage: UNK
     Route: 065
  50. ACETAMINOPHEN [Suspect]
     Active Substance: ACETAMINOPHEN
     Indication: Pyrexia
     Dosage: 2 DOSAGE FORM
     Route: 065
  51. ACETAMINOPHEN [Suspect]
     Active Substance: ACETAMINOPHEN
     Indication: Pain
     Dosage: UNK
     Route: 065

REACTIONS (5)
  - Schizoaffective disorder [Not Recovered/Not Resolved]
  - Electrocardiogram QT prolonged [Not Recovered/Not Resolved]
  - Drug level increased [Not Recovered/Not Resolved]
  - Drug interaction [Unknown]
  - Product use issue [Unknown]
